FAERS Safety Report 4939289-9 (Version None)
Quarter: 2006Q1

REPORT INFORMATION
  Report Type: 
  Country: None (occurrence: None)
  Receive Date: 20060306
  Receipt Date: 20060217
  Transmission Date: 20060701
  Serious: Yes (Hospitalization, Other)
  Sender: FDA-Public Use
  Company Number: 8015109

PATIENT
  Age: 22 Year
  Sex: Female

DRUGS (1)
  1. THEOPHYLLINE [Suspect]
     Dosage: 20 G ONCE PO
     Route: 048

REACTIONS (8)
  - EPILEPSY [None]
  - HYPOKALAEMIA [None]
  - HYPOTENSION [None]
  - INTENTIONAL OVERDOSE [None]
  - NAUSEA [None]
  - PALPITATIONS [None]
  - SUICIDE ATTEMPT [None]
  - THERAPY NON-RESPONDER [None]
